FAERS Safety Report 6714265-4 (Version None)
Quarter: 2010Q2

REPORT INFORMATION
  Report Type: 
  Country: None (occurrence: None)
  Receive Date: 20100506
  Receipt Date: 20090810
  Transmission Date: 20101027
  Serious: No
  Sender: FDA-Public Use
  Company Number: US-BAUSCH-2009BL004019

PATIENT
  Age: 66 Year
  Sex: Female

DRUGS (5)
  1. LOTEMAX [Suspect]
     Indication: INFLAMMATION
     Route: 047
     Dates: start: 20090712, end: 20090810
  2. LOTEMAX [Suspect]
     Indication: DRY EYE
     Route: 047
     Dates: start: 20090712, end: 20090810
  3. LOTEMAX [Suspect]
     Indication: OFF LABEL USE
     Route: 047
     Dates: start: 20090712, end: 20090810
  4. SYNTHROID [Concomitant]
     Indication: HYPOTHYROIDISM
     Route: 048
  5. BENICAR HCT [Concomitant]
     Indication: HYPERTENSION
     Route: 048

REACTIONS (1)
  - INTRAOCULAR PRESSURE INCREASED [None]
